FAERS Safety Report 5977916-8 (Version None)
Quarter: 2008Q4

REPORT INFORMATION
  Report Type: 
  Country: None (occurrence: None)
  Receive Date: 20081203
  Receipt Date: 20081113
  Transmission Date: 20090506
  Serious: No
  Sender: FDA-Public Use
  Company Number: US-B.I. PHARMACEUTICALS,INC./RIDGEFIELD-2008-BP-17204BP

PATIENT
  Age: 71 Year
  Sex: Male

DRUGS (5)
  1. ZANTAC 150 [Suspect]
     Indication: DYSPEPSIA
     Dosage: 300MG
     Route: 048
     Dates: start: 10081111
  2. AMBIEN [Concomitant]
     Indication: SLEEP DISORDER
  3. INSULIN [Concomitant]
     Indication: DIABETES MELLITUS
  4. HEART MEDS [Concomitant]
  5. LOPRESSOR [Concomitant]
     Indication: BLOOD PRESSURE INCREASED

REACTIONS (2)
  - DRUG INEFFECTIVE [None]
  - DYSPEPSIA [None]
